FAERS Safety Report 21309691 (Version 2)
Quarter: 2022Q4

REPORT INFORMATION
  Report Type: Spontaneous
  Country: AU (occurrence: AU)
  Receive Date: 20220908
  Receipt Date: 20221107
  Transmission Date: 20230113
  Serious: Yes (Other)
  Sender: FDA-Public Use
  Company Number: AU-AMGEN-AUSSP2022104748

PATIENT
  Age: 62 Year
  Sex: Female

DRUGS (2)
  1. EVENITY [Suspect]
     Active Substance: ROMOSOZUMAB-AQQG
     Indication: Osteoporosis
     Dosage: UNK, QMO (2 OF THE SYRINGES ONCE A MONTH)
     Route: 058
     Dates: start: 20220616
  2. REPATHA [Suspect]
     Active Substance: EVOLOCUMAB
     Indication: Ankylosing spondylitis
     Dosage: UNK, QMO
     Route: 065

REACTIONS (7)
  - Autoimmune disorder [Unknown]
  - Product preparation error [Unknown]
  - Product communication issue [Unknown]
  - Injection site mass [Recovered/Resolved]
  - Injection site bruising [Not Recovered/Not Resolved]
  - Injection site pain [Not Recovered/Not Resolved]
  - Arthralgia [Unknown]

NARRATIVE: CASE EVENT DATE: 20220101
